FAERS Safety Report 9866217 (Version 2)
Quarter: 2014Q1

REPORT INFORMATION
  Report Type: Spontaneous
  Country: US (occurrence: US)
  Receive Date: 20140203
  Receipt Date: 20140203
  Transmission Date: 20141002
  Serious: No
  Sender: FDA-Public Use
  Company Number: US-ALLERGAN-1317401US

PATIENT
  Age: 64 Year
  Sex: Female
  Weight: 81.63 kg

DRUGS (2)
  1. RESTASIS [Suspect]
     Indication: DRY EYE
     Dosage: 1 GTT, BID
     Dates: start: 20131002, end: 20131006
  2. SIMVASTATIN [Concomitant]
     Indication: BLOOD CHOLESTEROL
     Dosage: 20 MG, UNK
     Route: 048

REACTIONS (12)
  - Eye disorder [Unknown]
  - Insomnia [Unknown]
  - Vertigo [Unknown]
  - Eye swelling [Unknown]
  - Headache [Unknown]
  - Dizziness [Unknown]
  - Eyelid oedema [Unknown]
  - Eye discharge [Unknown]
  - Ocular hyperaemia [Unknown]
  - Eye irritation [Unknown]
  - Eye pain [Unknown]
  - Eye irritation [Unknown]
